FAERS Safety Report 7979751-8 (Version None)
Quarter: 2011Q4

REPORT INFORMATION
  Report Type: 
  Country: None (occurrence: None)
  Receive Date: 20111214
  Receipt Date: 20111207
  Transmission Date: 20120403
  Serious: Yes (Other)
  Sender: FDA-Public Use
  Company Number: CH-JNJFOC-20111203108

PATIENT
  Age: 31 Year
  Sex: Female

DRUGS (4)
  1. TRAZODONE HCL [Suspect]
     Indication: ANXIETY
     Route: 065
  2. TOPAMAX [Suspect]
     Indication: BIPOLAR DISORDER
     Route: 048
     Dates: end: 20100927
  3. TRAZODONE HCL [Suspect]
     Indication: BIPOLAR DISORDER
     Route: 065
  4. TOPAMAX [Suspect]
     Indication: ANXIETY
     Route: 048
     Dates: end: 20100927

REACTIONS (2)
  - ABORTION SPONTANEOUS [None]
  - MATERNAL EXPOSURE DURING PREGNANCY [None]
